FAERS Safety Report 5835001-X (Version None)
Quarter: 2008Q3

REPORT INFORMATION
  Report Type: 
  Country: None (occurrence: None)
  Receive Date: 20080806
  Receipt Date: 20080728
  Transmission Date: 20090109
  Serious: Yes (Hospitalization)
  Sender: FDA-Public Use
  Company Number: NL-AMGEN-US298410

PATIENT
  Age: 60 Year
  Sex: Male
  Weight: 92 kg

DRUGS (5)
  1. ENBREL [Suspect]
     Indication: PSORIATIC ARTHROPATHY
     Route: 058
     Dates: start: 20040101
  2. ASCAL [Concomitant]
     Indication: CARDIOVASCULAR DISORDER
     Dosage: 100 MG
     Route: 065
  3. DIOVAN HCT [Concomitant]
     Indication: CARDIOVASCULAR DISORDER
     Dosage: 320/12.5 MG
     Route: 065
  4. PLAVIX [Concomitant]
     Indication: CARDIOVASCULAR DISORDER
     Dosage: UNK
     Route: 065
  5. BISOPROLOL FUMARATE [Concomitant]
     Indication: CARDIOVASCULAR DISORDER
     Dosage: 5 MG
     Route: 065

REACTIONS (1)
  - STENT OCCLUSION [None]
